FAERS Safety Report 5094090-3 (Version None)
Quarter: 2006Q3

REPORT INFORMATION
  Report Type: 
  Country: None (occurrence: None)
  Receive Date: 20060831
  Receipt Date: 20060824
  Transmission Date: 20061208
  Serious: Yes (Hospitalization)
  Sender: FDA-Public Use
  Company Number: US-ROCHE-460728

PATIENT
  Age: 50 Year
  Sex: Female

DRUGS (3)
  1. BONIVA [Suspect]
     Indication: OSTEOPOROSIS
     Route: 048
     Dates: start: 20050615
  2. DURAGESIC-100 [Concomitant]
     Indication: PAIN
     Route: 062
  3. MOTRIN [Concomitant]
     Indication: PAIN

REACTIONS (4)
  - FOOT FRACTURE [None]
  - ROAD TRAFFIC ACCIDENT [None]
  - UPPER LIMB FRACTURE [None]
  - WRIST FRACTURE [None]
